FAERS Safety Report 4268733-8 (Version None)
Quarter: 2004Q1

REPORT INFORMATION
  Report Type: 
  Country: None (occurrence: None)
  Receive Date: 20040109
  Receipt Date: 20031230
  Transmission Date: 20041129
  Serious: Yes (Hospitalization, Other)
  Sender: FDA-Public Use
  Company Number: HQWYE960730DEC03

PATIENT
  Age: 82 Year
  Sex: Male

DRUGS (7)
  1. CORDARONE [Suspect]
     Dosage: 200 MG DOSE
     Route: 048
     Dates: start: 20010402, end: 20031028
  2. EFFEXOR [Suspect]
     Dosage: SEE IMAGE
     Route: 048
     Dates: start: 20030915, end: 20030916
  3. EFFEXOR [Suspect]
     Dosage: SEE IMAGE
     Route: 048
     Dates: start: 20030917, end: 20031030
  4. PREDNISONE [Concomitant]
  5. PREVISCAN (FLUINDIONE) [Concomitant]
  6. NITROGLYCERIN [Concomitant]
  7. OMEPRAZOLE [Concomitant]

REACTIONS (2)
  - BLOOD GLUCOSE FLUCTUATION [None]
  - HYPOGLYCAEMIA [None]
